FAERS Safety Report 7970037-4 (Version None)
Quarter: 2011Q4

REPORT INFORMATION
  Report Type: 
  Country: None (occurrence: None)
  Receive Date: 20111212
  Receipt Date: 20111129
  Transmission Date: 20120403
  Serious: No
  Sender: FDA-Public Use
  Company Number: ES-NOVOPROD-335646

PATIENT
  Sex: Female
  Weight: 79.9 kg

DRUGS (5)
  1. LIRAGLUTIDE FLEXPEN [Suspect]
     Dosage: 1.8 MG, QD
     Route: 058
     Dates: start: 20110629, end: 20110706
  2. LIRAGLUTIDE FLEXPEN [Suspect]
     Dosage: 1.2 MG, QD
     Route: 058
     Dates: start: 20110623, end: 20110628
  3. LIRAGLUTIDE FLEXPEN [Suspect]
     Dosage: 3.0 MG, QD
     Route: 058
     Dates: start: 20110727
  4. LIRAGLUTIDE FLEXPEN [Suspect]
     Indication: OBESITY
     Dosage: 0.6 MG, QD
     Route: 058
     Dates: start: 20110615, end: 20110622
  5. LIRAGLUTIDE FLEXPEN [Suspect]
     Dosage: 2.4 MG, QD
     Route: 058
     Dates: start: 20110707, end: 20110726

REACTIONS (1)
  - LIPASE INCREASED [None]
